FAERS Safety Report 7638261-8 (Version None)
Quarter: 2011Q3

REPORT INFORMATION
  Report Type: 
  Country: None (occurrence: None)
  Receive Date: 20110721
  Receipt Date: 20110721
  Transmission Date: 20111222
  Serious: No
  Sender: FDA-Public Use
  Company Number: None

PATIENT
  Sex: Male

DRUGS (1)
  1. LATANOPROST [Suspect]
     Dosage: INSTILL ONE DROP IN EACH EYE AT BEDTIME

REACTIONS (2)
  - MEDICATION ERROR [None]
  - PRODUCT PACKAGING ISSUE [None]
